FAERS Safety Report 8064648-8 (Version None)
Quarter: 2012Q1

REPORT INFORMATION
  Report Type: 
  Country: None (occurrence: None)
  Receive Date: 20120123
  Receipt Date: 20120118
  Transmission Date: 20120608
  Serious: Yes (Life-Threatening, Hospitalization, Other)
  Sender: FDA-Public Use
  Company Number: FR-ASTRAZENECA-2011SE65244

PATIENT
  Age: 29 Year
  Sex: Male
  Weight: 75 kg

DRUGS (3)
  1. XYLOCAINE [Concomitant]
     Indication: ANAESTHESIA
     Dates: start: 20110101, end: 20110101
  2. CHIROCAINE [Concomitant]
     Indication: ANAESTHESIA
  3. XYLOCAINE [Suspect]
     Indication: ANAESTHESIA
     Dosage: ONCE/SINGLE ADMINISTRATION
     Route: 065
     Dates: start: 20110101, end: 20110101

REACTIONS (3)
  - OFF LABEL USE [None]
  - TREMOR [None]
  - CARDIAC ARREST [None]
